FAERS Safety Report 9285565 (Version 1)
Quarter: 2013Q2

REPORT INFORMATION
  Report Type: Spontaneous
  Country: US (occurrence: US)
  Receive Date: 20130513
  Receipt Date: 20130513
  Transmission Date: 20140414
  Serious: Yes (Other)
  Sender: FDA-Public Use
  Company Number: US-MYLANLABS-2013S1009701

PATIENT
  Age: 30 Year
  Sex: Female

DRUGS (13)
  1. QUETIAPINE [Suspect]
     Indication: DELIRIUM
     Dosage: 12.5MG MORNING, 12.5MG AFTERNOON, 25MG BEDTIME; INCREASED AFTER 10D
     Route: 065
  2. QUETIAPINE [Suspect]
     Indication: DELIRIUM
     Dosage: 25MG MORNING, 25MG AFTERNOON, 50MG BEDTIME
     Route: 065
  3. VANCOMYCIN [Suspect]
     Indication: MENINGITIS
     Route: 065
  4. CLONAZEPAM [Concomitant]
     Indication: DELIRIUM
     Route: 065
  5. LEVETIRACETAM [Concomitant]
     Indication: CONVULSION
     Route: 065
  6. NIMODIPINE [Concomitant]
     Indication: CEREBRAL VASOCONSTRICTION
     Route: 065
  7. NIMODIPINE [Concomitant]
     Indication: PROPHYLAXIS
     Route: 065
  8. DEXAMETHASONE [Concomitant]
     Indication: BRAIN OEDEMA
     Route: 065
  9. PROPOFOL [Concomitant]
     Route: 065
  10. FENTANYL [Concomitant]
     Route: 065
  11. MEROPENEM [Concomitant]
     Indication: MENINGITIS
     Route: 065
  12. PRAVASTATIN [Concomitant]
     Indication: CEREBRAL VASOCONSTRICTION
     Route: 065
  13. PRAVASTATIN [Concomitant]
     Indication: PROPHYLAXIS
     Route: 065

REACTIONS (2)
  - Leukopenia [Recovered/Resolved]
  - Neutropenia [Recovered/Resolved]
